FAERS Safety Report 8474489-5 (Version None)
Quarter: 2012Q2

REPORT INFORMATION
  Report Type: 
  Country: None (occurrence: None)
  Receive Date: 20120628
  Receipt Date: 20120626
  Transmission Date: 20120825
  Serious: Yes (Other)
  Sender: FDA-Public Use
  Company Number: PHHY2011CA28394

PATIENT
  Sex: Female

DRUGS (2)
  1. SANDOSTATIN LAR [Suspect]
     Indication: CARCINOID TUMOUR
     Dosage: 30 MG EVERY 4 WEEKS
     Route: 030
     Dates: start: 20070530
  2. SYNTHROID [Concomitant]

REACTIONS (8)
  - ARTHRALGIA [None]
  - JOINT SWELLING [None]
  - EAR PAIN [None]
  - HEADACHE [None]
  - CHILLS [None]
  - CHEST PAIN [None]
  - FALL [None]
  - FATIGUE [None]
